FAERS Safety Report 11175626 (Version 1)
Quarter: 2015Q2

REPORT INFORMATION
  Report Type: Report from Study
  Country: FR (occurrence: FR)
  Receive Date: 20150609
  Receipt Date: 20150609
  Transmission Date: 20150821
  Serious: Yes (Hospitalization)
  Sender: FDA-Public Use
  Company Number: FR-GLAXOSMITHKLINE-FR2015GSK079166

PATIENT
  Age: 69 Year
  Sex: Male

DRUGS (6)
  1. PLAVIX [Concomitant]
     Active Substance: CLOPIDOGREL BISULFATE
  2. TENSTATEN [Concomitant]
     Active Substance: CICLETANINE HYDROCHLORIDE
  3. KARDEGIC [Concomitant]
     Active Substance: ASPIRIN LYSINE
  4. SIMVASTATIN. [Concomitant]
     Active Substance: SIMVASTATIN
  5. TRIATEC [Concomitant]
     Active Substance: RAMIPRIL
  6. OMEGA-3-ACID ETHYL ESTERS. [Suspect]
     Active Substance: OMEGA-3-ACID ETHYL ESTERS
     Indication: ISCHAEMIC HEART DISEASE PROPHYLAXIS
     Dosage: UNK
     Dates: start: 20070425, end: 20070426

REACTIONS (1)
  - Urinary bladder polyp [Unknown]

NARRATIVE: CASE EVENT DATE: 200809
